FAERS Safety Report 6260924-X (Version None)
Quarter: 2009Q3

REPORT INFORMATION
  Report Type: 
  Country: None (occurrence: None)
  Receive Date: 20090707
  Receipt Date: 20090707
  Transmission Date: 20100115
  Serious: Yes (Death)
  Sender: FDA-Public Use
  Company Number: None

PATIENT
  Age: 55 Year
  Sex: Male
  Weight: 95.2554 kg

DRUGS (2)
  1. ZONISAMIDE [Suspect]
     Indication: GRAND MAL CONVULSION
     Dosage: 300 MG TWICE DAILY PO
     Route: 048
     Dates: start: 20010101, end: 20090227
  2. LAMICTAL [Suspect]
     Dosage: 300 MG TWICE DAILY PO
     Route: 048
     Dates: start: 20090101, end: 20090227

REACTIONS (4)
  - CARDIO-RESPIRATORY ARREST [None]
  - CONVULSION [None]
  - DRUG INEFFECTIVE [None]
  - PRODUCT SUBSTITUTION ISSUE [None]
